FAERS Safety Report 6011959-3 (Version None)
Quarter: 2008Q4

REPORT INFORMATION
  Report Type: 
  Country: None (occurrence: None)
  Receive Date: 20081218
  Receipt Date: 20081014
  Transmission Date: 20090506
  Serious: No
  Sender: FDA-Public Use
  Company Number: US-ASTRAZENECA-2008UW22581

PATIENT
  Age: 71 Year
  Sex: Female
  Weight: 69.4 kg

DRUGS (7)
  1. CRESTOR [Suspect]
     Indication: BLOOD CHOLESTEROL INCREASED
     Route: 048
     Dates: start: 20080914
  2. SYNTHROID [Concomitant]
  3. CARVEDILOL [Concomitant]
  4. DYNACIRC [Concomitant]
  5. CALCITRIOL [Concomitant]
  6. FOLIC ACID [Concomitant]
  7. M.V.I. [Concomitant]

REACTIONS (2)
  - ABDOMINAL DISTENSION [None]
  - FLATULENCE [None]
